FAERS Safety Report 6543409-2 (Version None)
Quarter: 2010Q1

REPORT INFORMATION
  Report Type: 
  Country: None (occurrence: None)
  Receive Date: 20100120
  Receipt Date: 20100108
  Transmission Date: 20100710
  Serious: Yes (Hospitalization)
  Sender: FDA-Public Use
  Company Number: US-WYE-H12949310

PATIENT
  Sex: Male

DRUGS (1)
  1. CHAPSTICK ULTRA SPF 30 [Suspect]
     Indication: DRUG USE FOR UNKNOWN INDICATION
     Dosage: UNKNOWN
     Route: 061
     Dates: start: 20100102

REACTIONS (3)
  - APPLICATION SITE REACTION [None]
  - APPLICATION SITE SWELLING [None]
  - POISONING [None]
